FAERS Safety Report 4744196-0 (Version None)
Quarter: 2005Q3

REPORT INFORMATION
  Report Type: 
  Country: None (occurrence: None)
  Receive Date: 20050810
  Receipt Date: 20050810
  Transmission Date: 20060218
  Serious: Yes (Other)
  Sender: FDA-Public Use
  Company Number: None

PATIENT
  Age: 34 Year
  Sex: Male
  Weight: 67.1324 kg

DRUGS (2)
  1. OXYCODONE  SR (TEVA) 80 MG TWO BID [Suspect]
     Indication: BACK PAIN
     Dosage: 80 MG TWO BID
     Dates: start: 20050725
  2. OXYCODONE  SR (ENDO) 80 MG TWO BID [Suspect]
     Indication: BACK PAIN
     Dosage: 80 MG TWO BID
     Dates: start: 20050803

REACTIONS (6)
  - ABDOMINAL PAIN [None]
  - DRUG INEFFECTIVE [None]
  - HEADACHE [None]
  - NAUSEA [None]
  - THINKING ABNORMAL [None]
  - VOMITING [None]
